FAERS Safety Report 9149892 (Version 1)
Quarter: 2013Q1

REPORT INFORMATION
  Report Type: Spontaneous
  Country: US (occurrence: None)
  Receive Date: 20130301
  Receipt Date: 20130301
  Transmission Date: 20140127
  Serious: Yes (Life-Threatening, Hospitalization)
  Sender: FDA-Public Use
  Company Number: None

PATIENT
  Age: 39 Year
  Sex: Male
  Weight: 80.1 kg

DRUGS (2)
  1. ENOXAPARIN [Suspect]
     Indication: ATRIAL FIBRILLATION
     Dosage: ENOXAPARIN 80MG  Q12H  SQ?1 DOSE
     Route: 058
     Dates: start: 20130227, end: 20130227
  2. WARFARIN [Suspect]
     Indication: ATRIAL FIBRILLATION
     Dosage: WARFARIN 5MG  Q24H AT 1700  PO?1 DOSE
     Route: 048
     Dates: start: 20130227, end: 20130227

REACTIONS (4)
  - Haematoma [None]
  - Respiratory distress [None]
  - Cardiac arrest [None]
  - Endotracheal intubation complication [None]
